FAERS Safety Report 4478466-0 (Version None)
Quarter: 2004Q4

REPORT INFORMATION
  Report Type: 
  Country: None (occurrence: None)
  Receive Date: 20041019
  Receipt Date: 20041008
  Transmission Date: 20050328
  Serious: Yes (Hospitalization)
  Sender: FDA-Public Use
  Company Number: FR-JNJFOC-20041002950

PATIENT
  Age: 68 Year
  Sex: Female

DRUGS (3)
  1. HALDOL [Suspect]
     Dosage: 100 DROPS TID
     Route: 049
  2. HALDOL [Suspect]
     Dosage: 80 DROPS TID
     Route: 049
  3. PIPORTIL [Suspect]
     Route: 049

REACTIONS (2)
  - BLOOD CREATINE PHOSPHOKINASE INCREASED [None]
  - PYREXIA [None]
